FAERS Safety Report 24166447 (Version 3)
Quarter: 2024Q3

REPORT INFORMATION
  Report Type: Spontaneous
  Country: CZ (occurrence: CZ)
  Receive Date: 20240802
  Receipt Date: 20240910
  Transmission Date: 20241017
  Serious: Yes (Death, Congenital Anomaly)
  Sender: GLAXOSMITHKLINE
  Company Number: CZ-GLAXOSMITHKLINE-CZ2024EME093690

PATIENT

DRUGS (2)
  1. LAMICTAL [Suspect]
     Active Substance: LAMOTRIGINE
     Indication: Epilepsy
     Dosage: UNK (200 2X( IN PREGNANCY 300 2X)
     Route: 064
  2. KEPPRA [Suspect]
     Active Substance: LEVETIRACETAM
     Indication: Epilepsy
     Dosage: 1000-0-1000 (IN PREGNANCY 1500 2X)
     Route: 064

REACTIONS (2)
  - Ornithine transcarbamoylase deficiency [Fatal]
  - Foetal exposure during pregnancy [Unknown]
